FAERS Safety Report 6962609-0 (Version None)
Quarter: 2010Q3

REPORT INFORMATION
  Report Type: 
  Country: None (occurrence: None)
  Receive Date: 20100902
  Receipt Date: 20100824
  Transmission Date: 20110219
  Serious: Yes (Other)
  Sender: FDA-Public Use
  Company Number: JP-PFIZER INC-2010106370

PATIENT
  Age: 72 Year
  Sex: Female

DRUGS (4)
  1. LIPITOR [Suspect]
     Dosage: 10 MG, UNKNOWN/D
     Route: 048
     Dates: start: 20100303
  2. LASIX [Concomitant]
     Dosage: UNK
     Route: 048
     Dates: start: 20090825
  3. KINEDAK [Concomitant]
     Dosage: UNK
     Route: 048
  4. GLUCOBAY [Concomitant]
     Dosage: UNK
     Route: 048

REACTIONS (1)
  - CHROMATURIA [None]
